FAERS Safety Report 24368706 (Version 1)
Quarter: 2024Q3

REPORT INFORMATION
  Report Type: Spontaneous
  Country: US (occurrence: US)
  Receive Date: 20240926
  Receipt Date: 20240926
  Transmission Date: 20241016
  Serious: Yes (Other)
  Sender: CIPLA
  Company Number: US-BMS-IMIDS-REMS-SI-11645766

PATIENT

DRUGS (1)
  1. LENALIDOMIDE [Suspect]
     Active Substance: LENALIDOMIDE
     Indication: Product used for unknown indication
     Dosage: UNK
     Route: 065

REACTIONS (4)
  - Erectile dysfunction [Not Recovered/Not Resolved]
  - Testicular disorder [Not Recovered/Not Resolved]
  - Penis disorder [Not Recovered/Not Resolved]
  - Penile vascular disorder [Not Recovered/Not Resolved]

NARRATIVE: CASE EVENT DATE: 20240101
